FAERS Safety Report 8017323-X (Version None)
Quarter: 2012Q1

REPORT INFORMATION
  Report Type: 
  Country: None (occurrence: None)
  Receive Date: 20120102
  Receipt Date: 20111230
  Transmission Date: 20120608
  Serious: Yes (Hospitalization)
  Sender: FDA-Public Use
  Company Number: AT-ROCHE-1024362

PATIENT
  Sex: Male
  Weight: 59 kg

DRUGS (2)
  1. PEGINTERFERON ALFA-2A [Suspect]
     Indication: HEPATITIS C
     Route: 058
     Dates: end: 20110921
  2. COPEGUS [Suspect]
     Indication: HEPATITIS C
     Route: 048
     Dates: end: 20110921

REACTIONS (1)
  - PNEUMOTHORAX [None]
